FAERS Safety Report 12684298 (Version 2)
Quarter: 2016Q3

REPORT INFORMATION
  Report Type: Report from Study
  Country: US (occurrence: US)
  Receive Date: 20160825
  Receipt Date: 20160831
  Transmission Date: 20161109
  Serious: Yes (Other)
  Sender: FDA-Public Use
  Company Number: US-GILEAD-2016-0229838

PATIENT
  Age: 78 Year
  Sex: Female

DRUGS (1)
  1. AMBRISENTAN [Suspect]
     Active Substance: AMBRISENTAN
     Indication: PRODUCT USED FOR UNKNOWN INDICATION
     Dosage: 5 MG, UNK
     Route: 065

REACTIONS (11)
  - Thrombosis [Unknown]
  - Dyspnoea exertional [Unknown]
  - Eye swelling [Unknown]
  - Swelling face [Unknown]
  - Feeling hot [Unknown]
  - Eye discharge [Unknown]
  - Rhinorrhoea [Unknown]
  - Visual impairment [Unknown]
  - Hypotension [Unknown]
  - Peripheral swelling [Unknown]
  - Fatigue [Unknown]
